FAERS Safety Report 15698458 (Version 2)
Quarter: 2019Q2

REPORT INFORMATION
  Report Type: Spontaneous
  Country: US (occurrence: US)
  Receive Date: 20181207
  Receipt Date: 20190426
  Transmission Date: 20190711
  Serious: Yes (Other)
  Sender: FDA-Public Use
  Company Number: US-009507513-1811USA012229

PATIENT
  Sex: Female
  Weight: 97.78 kg

DRUGS (1)
  1. NEXPLANON [Suspect]
     Active Substance: ETONOGESTREL
     Indication: CONTRACEPTION
     Dosage: 1 IMPLANT
     Route: 059
     Dates: start: 20180221

REACTIONS (7)
  - Complication associated with device [Not Recovered/Not Resolved]
  - Migraine [Unknown]
  - Oligomenorrhoea [Unknown]
  - Smear cervix abnormal [Unknown]
  - Pregnancy with implant contraceptive [Not Recovered/Not Resolved]
  - Anxiety [Unknown]
  - Unintended pregnancy [Not Recovered/Not Resolved]

NARRATIVE: CASE EVENT DATE: 2018
